FAERS Safety Report 7492077-4 (Version None)
Quarter: 2011Q2

REPORT INFORMATION
  Report Type: 
  Country: None (occurrence: None)
  Receive Date: 20110519
  Receipt Date: 20110512
  Transmission Date: 20111010
  Serious: Yes (Hospitalization)
  Sender: FDA-Public Use
  Company Number: US-ENDO PHARMACEUTICALS INC.-VANT20110011

PATIENT
  Sex: Male
  Weight: 83.99 kg

DRUGS (1)
  1. VANTAS [Suspect]
     Indication: PROSTATE CANCER
     Dosage: 50 MG
     Route: 058

REACTIONS (3)
  - PARANOIA [None]
  - CONFUSIONAL STATE [None]
  - DEPRESSION [None]
